FAERS Safety Report 4682097-7 (Version None)
Quarter: 2005Q2

REPORT INFORMATION
  Report Type: 
  Country: None (occurrence: None)
  Receive Date: 20050602
  Receipt Date: 20050520
  Transmission Date: 20051028
  Serious: Yes (Hospitalization)
  Sender: FDA-Public Use
  Company Number: S05-FRA-01968-01

PATIENT
  Age: 93 Year
  Sex: Female

DRUGS (14)
  1. CITALOPRAM HYDROBROMIDE [Suspect]
     Indication: DEPRESSION
     Dosage: 20 MG QD PO
     Route: 048
     Dates: start: 20050301, end: 20050413
  2. LASIX [Suspect]
     Dosage: 40 MG QD PO
     Route: 048
     Dates: end: 20050401
  3. LASIX [Suspect]
     Indication: ATRIAL FIBRILLATION
     Dosage: 20 MG QD IV
     Route: 042
     Dates: start: 20050401
  4. LASIX [Suspect]
     Indication: ATRIAL FLUTTER
     Dosage: 20 MG QD IV
     Route: 042
     Dates: start: 20050401
  5. KARDEGIC (ACETYLSALICYLATE LYSINE) [Suspect]
     Indication: ATRIAL FIBRILLATION
     Dosage: 160 MG QD PO
     Route: 048
     Dates: end: 20050401
  6. KARDEGIC (ACETYLSALICYLATE LYSINE) [Suspect]
     Indication: ATRIAL FLUTTER
     Dosage: 160 MG QD PO
     Route: 048
     Dates: end: 20050401
  7. CORDARONE [Concomitant]
  8. XANAX [Concomitant]
  9. MORPHINE SULFATE [Concomitant]
  10. ACETAMINOPHEN [Concomitant]
  11. DISCONTRINE (GLYCERYL TRINITRATE) [Concomitant]
  12. OMEPRAZOLE [Concomitant]
  13. STILNOX (ZOLFIDEM) [Concomitant]
  14. FOSAMAX [Concomitant]

REACTIONS (5)
  - BLOOD POTASSIUM DECREASED [None]
  - CARDIAC FAILURE [None]
  - GENERAL PHYSICAL HEALTH DETERIORATION [None]
  - HYPERKALAEMIA [None]
  - HYPONATRAEMIA [None]
